FAERS Safety Report 15249051 (Version 1)
Quarter: 2018Q3

REPORT INFORMATION
  Report Type: Spontaneous
  Country: US (occurrence: US)
  Receive Date: 20180807
  Receipt Date: 20180807
  Transmission Date: 20181010
  Serious: No
  Sender: FDA-Public Use
  Company Number: US-MYLANLABS-2018M1052355

PATIENT
  Sex: Male
  Weight: 85 kg

DRUGS (1)
  1. FENTANYL TRANSDERMAL SYSTEM [Suspect]
     Active Substance: FENTANYL
     Indication: INJURY
     Dosage: , 1 DF1 UNK, QOD
     Route: 062

REACTIONS (4)
  - Drug dose omission [Recovered/Resolved]
  - Pain [Unknown]
  - Blood pressure increased [Unknown]
  - Product packaging issue [Unknown]
